FAERS Safety Report 9435390 (Version 2)
Quarter: 2013Q3

REPORT INFORMATION
  Report Type: Spontaneous
  Country: US (occurrence: US)
  Receive Date: 20130801
  Receipt Date: 20130826
  Transmission Date: 20140515
  Serious: No
  Sender: FDA-Public Use
  Company Number: US-009507513-1308USA000013

PATIENT
  Sex: Female
  Weight: 57.14 kg

DRUGS (3)
  1. NEXPLANON [Suspect]
     Indication: CONTRACEPTION
     Dosage: ONE ROD ONCE
     Route: 059
     Dates: start: 20121115
  2. SERTRALINE HYDROCHLORIDE [Concomitant]
  3. TOPAMAX [Concomitant]
     Dosage: UNK, PRN

REACTIONS (5)
  - Amenorrhoea [Unknown]
  - Dysfunctional uterine bleeding [Not Recovered/Not Resolved]
  - Polymenorrhoea [Not Recovered/Not Resolved]
  - Metrorrhagia [Not Recovered/Not Resolved]
  - Breast feeding [Unknown]
